FAERS Safety Report 21136672 (Version 1)
Quarter: 2022Q3

REPORT INFORMATION
  Report Type: Spontaneous
  Country: US (occurrence: None)
  Receive Date: 20220726
  Receipt Date: 20220726
  Transmission Date: 20221027
  Serious: No
  Sender: FDA-Public Use
  Company Number: None

PATIENT
  Age: 61 Year
  Sex: Female
  Weight: 64.35 kg

DRUGS (2)
  1. OTEZLA [Suspect]
     Active Substance: APREMILAST
  2. Betamol eye drops [Concomitant]

REACTIONS (2)
  - Cough [None]
  - Upper respiratory tract infection [None]

NARRATIVE: CASE EVENT DATE: 20220101
